FAERS Safety Report 5495278-X (Version None)
Quarter: 2007Q4

REPORT INFORMATION
  Report Type: 
  Country: None (occurrence: None)
  Receive Date: 20071024
  Receipt Date: 20071016
  Transmission Date: 20080405
  Serious: Yes (Hospitalization)
  Sender: FDA-Public Use
  Company Number: US-PFIZER INC-2007086191

PATIENT
  Sex: Male
  Weight: 27.9 kg

DRUGS (5)
  1. SUTENT [Suspect]
     Indication: METASTATIC NEOPLASM
     Dosage: DAILY DOSE:25MG-FREQ:1 DAILY
     Route: 048
     Dates: start: 20070808, end: 20070820
  2. IRINOTECAN HCL [Suspect]
     Indication: METASTATIC NEOPLASM
     Route: 042
  3. LEUCOVORIN [Suspect]
     Indication: METASTATIC NEOPLASM
     Route: 042
  4. FLUOROURACIL [Suspect]
     Indication: METASTATIC NEOPLASM
     Route: 042
     Dates: start: 20070807, end: 20070819
  5. FLUOROURACIL [Suspect]
     Route: 042

REACTIONS (2)
  - CHOLECYSTITIS ACUTE [None]
  - ENTEROBACTER SEPSIS [None]
